FAERS Safety Report 24918620 (Version 1)
Quarter: 2025Q1

REPORT INFORMATION
  Report Type: Report from Study
  Country: EG (occurrence: EG)
  Receive Date: 20250203
  Receipt Date: 20250203
  Transmission Date: 20250409
  Serious: No
  Sender: SANDOZ
  Company Number: EG-SANDOZ-SDZ2025EG005389

PATIENT
  Sex: Female

DRUGS (2)
  1. LEVOTHYROXINE SODIUM [Suspect]
     Active Substance: LEVOTHYROXINE SODIUM
     Indication: Product used for unknown indication
     Route: 065
  2. OMNITROPE [Suspect]
     Active Substance: SOMATROPIN
     Indication: Growth hormone deficiency
     Dosage: 2 MG, QD (OMNITROPE 10 MG)
     Route: 058
     Dates: start: 201905

REACTIONS (5)
  - Drug administered in wrong device [Unknown]
  - Product availability issue [Unknown]
  - Expired device used [Unknown]
  - Device issue [Unknown]
  - Device breakage [Unknown]
